FAERS Safety Report 10480446 (Version 1)
Quarter: 2014Q3

REPORT INFORMATION
  Report Type: Spontaneous
  Country: US (occurrence: None)
  Receive Date: 20140925
  Receipt Date: 20140925
  Transmission Date: 20150326
  Serious: Yes (Other)
  Sender: FDA-Public Use
  Company Number: 2014-US-008623

PATIENT
  Age: 54 Year
  Sex: Female
  Weight: 60.8 kg

DRUGS (15)
  1. MIRALAX [Concomitant]
     Active Substance: POLYETHYLENE GLYCOL 3350
  2. VITAMIN E [Concomitant]
     Active Substance: .ALPHA.-TOCOPHEROL
  3. STOOL SOFTENER (DOCUSATE CALCIUM) [Concomitant]
  4. OMEPRAZOLE. [Concomitant]
     Active Substance: OMEPRAZOLE
  5. XYREM [Suspect]
     Active Substance: SODIUM OXYBATE
     Indication: SOMNOLENCE
     Route: 048
     Dates: start: 201405, end: 2014
  6. IMITREX [Concomitant]
     Active Substance: SUMATRIPTAN\SUMATRIPTAN SUCCINATE
  7. TOPAMAX [Concomitant]
     Active Substance: TOPIRAMATE
  8. VITAMIN D3 [Concomitant]
     Active Substance: CHOLECALCIFEROL
  9. XYREM [Suspect]
     Active Substance: SODIUM OXYBATE
     Indication: NARCOLEPSY
     Route: 048
     Dates: start: 201405, end: 2014
  10. VITAMIN C [Concomitant]
     Active Substance: ASCORBIC ACID
  11. MULTIVITAMIN (VITAMINS NOS) [Concomitant]
     Active Substance: VITAMINS
  12. CALCIUM [Concomitant]
     Active Substance: CALCIUM
  13. EEMT [Concomitant]
     Active Substance: ESTROGENS, ESTERIFIED\METHYLTESTOSTERONE
  14. HYOSCYAMINE [Concomitant]
     Active Substance: HYOSCYAMINE
  15. FISH OIL [Concomitant]
     Active Substance: FISH OIL

REACTIONS (12)
  - Paraesthesia [None]
  - Lethargy [None]
  - Nausea [None]
  - Gallbladder disorder [None]
  - Vomiting [None]
  - Weight decreased [None]
  - Decreased appetite [None]
  - Musculoskeletal chest pain [None]
  - Fatigue [None]
  - Dysgeusia [None]
  - Hepatic enzyme increased [None]
  - Tremor [None]

NARRATIVE: CASE EVENT DATE: 201405
